FAERS Safety Report 8094464-2 (Version None)
Quarter: 2012Q1

REPORT INFORMATION
  Report Type: 
  Country: None (occurrence: None)
  Receive Date: 20120130
  Receipt Date: 20120117
  Transmission Date: 20120608
  Serious: Yes (Disabling, Other)
  Sender: FDA-Public Use
  Company Number: US-ELI_LILLY_AND_COMPANY-US_0509121761

PATIENT
  Sex: Male
  Weight: 136.5 kg

DRUGS (2)
  1. MICROZIDE [Concomitant]
     Dates: start: 19950101
  2. ZYPREXA [Suspect]
     Indication: ANXIETY
     Dosage: 20 MG, UNKNOWN
     Route: 048
     Dates: start: 19980101, end: 20010101

REACTIONS (18)
  - CARDIAC FAILURE CONGESTIVE [None]
  - THYROID DISORDER [None]
  - DIABETES MELLITUS [None]
  - VISION BLURRED [None]
  - BLOOD CHOLESTEROL ABNORMAL [None]
  - HEPATIC STEATOSIS [None]
  - FATIGUE [None]
  - BLOOD TRIGLYCERIDES INCREASED [None]
  - DEPRESSION [None]
  - BRADYPHRENIA [None]
  - HYPERGLYCAEMIA [None]
  - WEIGHT INCREASED [None]
  - GLYCOSURIA [None]
  - BLOOD PRESSURE INCREASED [None]
  - GASTROOESOPHAGEAL REFLUX DISEASE [None]
  - MYALGIA [None]
  - ERECTILE DYSFUNCTION [None]
  - FOOT FRACTURE [None]
